FAERS Safety Report 17852133 (Version 1)
Quarter: 2020Q2

REPORT INFORMATION
  Report Type: Spontaneous
  Country: US (occurrence: US)
  Receive Date: 20200602
  Receipt Date: 20200602
  Transmission Date: 20200714
  Serious: Yes (Hospitalization)
  Sender: FDA-Public Use
  Company Number: US-TEVA-2020-US-1242230

PATIENT
  Age: 68 Year
  Sex: Male

DRUGS (1)
  1. CYCLOBENZAPRINE. [Suspect]
     Active Substance: CYCLOBENZAPRINE
     Indication: INTENTIONAL OVERDOSE
     Route: 048

REACTIONS (3)
  - Intentional overdose [Unknown]
  - Electrocardiogram QRS complex prolonged [Recovered/Resolved]
  - Respiratory acidosis [Recovered/Resolved]
